FAERS Safety Report 6729670-X (Version None)
Quarter: 2010Q2

REPORT INFORMATION
  Report Type: 
  Country: None (occurrence: None)
  Receive Date: 20100518
  Receipt Date: 20100510
  Transmission Date: 20101027
  Serious: Yes (Hospitalization)
  Sender: FDA-Public Use
  Company Number: IT-JNJFOC-20100503534

PATIENT
  Age: 73 Year
  Sex: Female

DRUGS (7)
  1. TAVANIC [Suspect]
     Indication: SURGERY
     Route: 048
  2. TAVANIC [Suspect]
     Route: 041
  3. TARGOCID [Suspect]
     Indication: SURGERY
     Route: 030
  4. KETOROLAC TROMETHAMINE [Concomitant]
     Route: 030
  5. MORPHINE [Concomitant]
     Route: 065
  6. ROCEPHIN [Concomitant]
     Route: 042
  7. TACHIPIRINA [Concomitant]
     Route: 065

REACTIONS (1)
  - DERMATITIS EXFOLIATIVE [None]
